FAERS Safety Report 18058330 (Version 1)
Quarter: 2020Q3

REPORT INFORMATION
  Report Type: Report from Study
  Country: FR (occurrence: FR)
  Receive Date: 20200723
  Receipt Date: 20200723
  Transmission Date: 20201103
  Serious: Yes (Other)
  Sender: FDA-Public Use
  Company Number: FR-BAUSCH-BL-2020-020633

PATIENT
  Age: 45 Year
  Sex: Female

DRUGS (3)
  1. DEXAMETHASONE. [Suspect]
     Active Substance: DEXAMETHASONE
     Indication: PLASMA CELL MYELOMA
     Dosage: 2 TAKEN/4 WEEKS/CYCLE
     Route: 065
     Dates: end: 20180119
  2. VELCADE [Suspect]
     Active Substance: BORTEZOMIB
     Indication: PLASMA CELL MYELOMA
     Dosage: 2 INTAKES/4 WEEKS/CYCLE
     Route: 065
     Dates: end: 20180119
  3. THALIDOMIDE [Suspect]
     Active Substance: THALIDOMIDE
     Indication: PLASMA CELL MYELOMA
     Dosage: 7 TAKEN/3 WEEKS/CYCLE
     Route: 065
     Dates: end: 20180119

REACTIONS (6)
  - Intentional product misuse [Unknown]
  - Off label use [Unknown]
  - Neuropathy peripheral [Unknown]
  - Orthostatic hypotension [Unknown]
  - Bladder disorder [Unknown]
  - Diarrhoea [Unknown]
